FAERS Safety Report 9224656 (Version 1)
Quarter: 2013Q2

REPORT INFORMATION
  Report Type: Spontaneous
  Country: US (occurrence: None)
  Receive Date: 20130409
  Receipt Date: 20130409
  Transmission Date: 20140414
  Serious: Yes (Other)
  Sender: FDA-Public Use
  Company Number: AUR-APL-2013-02771

PATIENT
  Sex: Female

DRUGS (2)
  1. METOPROLOL (METOPROLOL) [Suspect]
     Indication: PRODUCT USED FOR UNKNOWN INDICATION
     Route: 048
  2. LIPITOR (ATORVASTATIN CALCIUM) [Suspect]
     Route: 048

REACTIONS (1)
  - Cerebrovascular accident [None]
